FAERS Safety Report 12156600 (Version 3)
Quarter: 2018Q1

REPORT INFORMATION
  Report Type: Spontaneous
  Country: US (occurrence: US)
  Receive Date: 20160307
  Receipt Date: 20180201
  Transmission Date: 20180508
  Serious: Yes (Hospitalization, Disabling, Other)
  Sender: FDA-Public Use
  Company Number: US-SA-2016SA040770

PATIENT
  Age: 71 Year
  Sex: Female

DRUGS (11)
  1. SOLOSTAR [Suspect]
     Active Substance: DEVICE
     Indication: TYPE 2 DIABETES MELLITUS
     Dates: start: 201508
  2. HUMALOG [Concomitant]
     Active Substance: INSULIN LISPRO
  3. LEVEMIR [Concomitant]
     Active Substance: INSULIN DETEMIR
  4. TOUJEO [Suspect]
     Active Substance: INSULIN GLARGINE
     Indication: TYPE 2 DIABETES MELLITUS
     Dosage: SHE WAS STARTED ON 40 UNITS TWICE A DAY /PATIENT TAKE 20 UNITS AND 30 UNITS IN AM AND PM
     Route: 051
     Dates: end: 201601
  5. TOUJEO [Suspect]
     Active Substance: INSULIN GLARGINE
     Indication: TYPE 2 DIABETES MELLITUS
     Dosage: DOSE:40 UNIT(S)
     Route: 051
     Dates: start: 201508
  6. SOLOSTAR [Concomitant]
     Active Substance: DEVICE
  7. TOUJEO [Suspect]
     Active Substance: INSULIN GLARGINE
     Indication: TYPE 2 DIABETES MELLITUS
     Route: 051
     Dates: start: 201510
  8. SOLOSTAR [Suspect]
     Active Substance: DEVICE
     Indication: TYPE 2 DIABETES MELLITUS
     Dates: end: 201601
  9. AVANDIA [Concomitant]
     Active Substance: ROSIGLITAZONE MALEATE
  10. SOLOSTAR [Suspect]
     Active Substance: DEVICE
     Indication: TYPE 2 DIABETES MELLITUS
     Dates: start: 201510
  11. LANTUS SOLOSTAR [Concomitant]
     Active Substance: INSULIN GLARGINE

REACTIONS (17)
  - Inflammation [Unknown]
  - Blister [Recovered/Resolved]
  - Cardiac failure congestive [Unknown]
  - Rales [Unknown]
  - Bacterial infection [Unknown]
  - Pancreatic disorder [Unknown]
  - Feeling abnormal [Unknown]
  - Blood pressure increased [Unknown]
  - Renal disorder [Unknown]
  - Glycosylated haemoglobin increased [Recovering/Resolving]
  - Vomiting [Unknown]
  - Herpes zoster [Unknown]
  - Blood glucose decreased [Unknown]
  - Product use issue [Unknown]
  - Decreased interest [Unknown]
  - Blood glucose increased [Not Recovered/Not Resolved]
  - Rash [Not Recovered/Not Resolved]

NARRATIVE: CASE EVENT DATE: 2015
